FAERS Safety Report 21216587 (Version 1)
Quarter: 2022Q3

REPORT INFORMATION
  Report Type: Spontaneous
  Country: CA (occurrence: None)
  Receive Date: 20220816
  Receipt Date: 20220816
  Transmission Date: 20221026
  Serious: Yes (Other)
  Sender: FDA-Public Use
  Company Number: CA-Orion Corporation ORION PHARMA-TREX2019-5166

PATIENT
  Age: 40 Year
  Sex: Female

DRUGS (1)
  1. METHOTREXATE [Suspect]
     Active Substance: METHOTREXATE
     Indication: Product used for unknown indication
     Route: 065
     Dates: start: 2012, end: 2013

REACTIONS (3)
  - Illness [Unknown]
  - Nausea [Unknown]
  - Alopecia [Unknown]
